FAERS Safety Report 25599885 (Version 1)
Quarter: 2025Q3

REPORT INFORMATION
  Report Type: Spontaneous
  Country: US (occurrence: US)
  Receive Date: 20250724
  Receipt Date: 20250724
  Transmission Date: 20251020
  Serious: Yes (Other)
  Sender: CHURCH & DWIGHT
  Company Number: US-CHURCH AND DWIGHT CO., INC-2025-CDW-01263

PATIENT
  Sex: Female

DRUGS (1)
  1. ZICAM (HOMEOPATHICS) [Suspect]
     Active Substance: HOMEOPATHICS
     Indication: Nasopharyngitis
     Route: 045

REACTIONS (9)
  - Aphonia [Unknown]
  - Deafness [Unknown]
  - Sinusitis [Unknown]
  - Ear pain [Unknown]
  - Ear discomfort [Unknown]
  - Speech disorder [Unknown]
  - Palatal disorder [Unknown]
  - Thermal burn [Unknown]
  - Rhinalgia [Unknown]
